FAERS Safety Report 6430885-9 (Version None)
Quarter: 2009Q4

REPORT INFORMATION
  Report Type: 
  Country: None (occurrence: None)
  Receive Date: 20091106
  Receipt Date: 20091029
  Transmission Date: 20100525
  Serious: Yes (Hospitalization)
  Sender: FDA-Public Use
  Company Number: JP-MERCK-0911USA00205

PATIENT
  Age: 83 Year
  Sex: Female

DRUGS (4)
  1. PEPCID [Suspect]
     Route: 048
     Dates: start: 20090623, end: 20091013
  2. ALEVIATIN [Suspect]
     Route: 048
     Dates: start: 20090623, end: 20091013
  3. BAKTAR [Suspect]
     Route: 048
     Dates: start: 20090818, end: 20091013
  4. PREDNISOLONE [Concomitant]
     Route: 065
     Dates: start: 20090811

REACTIONS (1)
  - DRUG ERUPTION [None]
